FAERS Safety Report 10266682 (Version 1)
Quarter: 2014Q2

REPORT INFORMATION
  Report Type: Spontaneous
  Country: DK (occurrence: DK)
  Receive Date: 20140630
  Receipt Date: 20140630
  Transmission Date: 20141212
  Serious: Yes (Life-Threatening, Hospitalization)
  Sender: FDA-Public Use
  Company Number: DK-ACCORD-024420

PATIENT
  Age: 34 Year
  Sex: Male

DRUGS (1)
  1. QUETIAPIN ACCORD [Suspect]
     Indication: SCHIZOAFFECTIVE DISORDER
     Dosage: STRENGTH- 25
     Route: 048
     Dates: start: 201308

REACTIONS (1)
  - Pulmonary embolism [Recovering/Resolving]
